FAERS Safety Report 13240350 (Version 2)
Quarter: 2017Q1

REPORT INFORMATION
  Report Type: Report from Study
  Country: None (occurrence: NL)
  Receive Date: 20170216
  Receipt Date: 20170301
  Transmission Date: 20170428
  Serious: Yes (Other)
  Sender: FDA-Public Use
  Company Number: NL-ABBVIE-17P-114-1877425-00

PATIENT
  Sex: Male

DRUGS (6)
  1. CARBASALATE CALCIUM [Concomitant]
     Active Substance: CARBASPIRIN
     Indication: PRODUCT USED FOR UNKNOWN INDICATION
     Route: 048
  2. BISACODYL. [Concomitant]
     Active Substance: BISACODYL
     Indication: PRODUCT USED FOR UNKNOWN INDICATION
     Route: 048
  3. BICALUTAMIDE. [Concomitant]
     Active Substance: BICALUTAMIDE
     Indication: PRODUCT USED FOR UNKNOWN INDICATION
     Route: 048
  4. LUCRIN DEPOT [Suspect]
     Active Substance: LEUPROLIDE ACETATE
     Indication: PROSTATE CANCER
     Route: 050
     Dates: start: 20150911
  5. PICOPREP [Concomitant]
     Active Substance: ANHYDROUS CITRIC ACID\MAGNESIUM OXIDE\SODIUM PICOSULFATE
     Indication: PRODUCT USED FOR UNKNOWN INDICATION
     Dosage: ACCORDING TO SCHEDULE
     Route: 065
  6. SIMVASTATIN. [Concomitant]
     Active Substance: SIMVASTATIN
     Indication: PRODUCT USED FOR UNKNOWN INDICATION
     Route: 048

REACTIONS (2)
  - Fall [Recovered/Resolved]
  - Humerus fracture [Recovering/Resolving]
